FAERS Safety Report 16865646 (Version 2)
Quarter: 2019Q4

REPORT INFORMATION
  Report Type: Other
  Country: CH (occurrence: CH)
  Receive Date: 20190930
  Receipt Date: 20191004
  Transmission Date: 20200122
  Serious: Yes (Hospitalization, Other)
  Sender: FDA-Public Use
  Company Number: CH-ASTELLAS-2019US038093

PATIENT
  Sex: Female
  Weight: 53 kg

DRUGS (5)
  1. BETMIGA [Suspect]
     Active Substance: MIRABEGRON
     Indication: INCONTINENCE
     Route: 048
  2. TEMESTA                            /00273201/ [Suspect]
     Active Substance: LORAZEPAM
     Indication: DEPRESSION
     Route: 048
  3. BETMIGA [Suspect]
     Active Substance: MIRABEGRON
     Indication: HYPERTONIC BLADDER
  4. ASPIRIN CARDIO [Concomitant]
     Active Substance: ASPIRIN
     Indication: TRANSIENT ISCHAEMIC ATTACK
     Dosage: 100 MG, ONCE DAILY(IN THE YEARS 2010 AND 2014)
     Route: 065
  5. LEXOTANIL [Suspect]
     Active Substance: BROMAZEPAM
     Indication: DEPRESSION
     Dosage: 0.75 MG, TWICE DAILY
     Route: 048

REACTIONS (3)
  - Fall [Recovering/Resolving]
  - Skull fractured base [Unknown]
  - Haemorrhage intracranial [Unknown]
